FAERS Safety Report 7081413-9 (Version None)
Quarter: 2010Q4

REPORT INFORMATION
  Report Type: 
  Country: None (occurrence: None)
  Receive Date: 20101102
  Receipt Date: 20101102
  Transmission Date: 20110411
  Serious: Yes (Other)
  Sender: FDA-Public Use
  Company Number: None

PATIENT
  Age: 86 Year
  Sex: Female
  Weight: 50.8029 kg

DRUGS (1)
  1. CELEBREX [Suspect]
     Indication: OSTEOARTHRITIS
     Dosage: 200MG 1 EA. DAY PO
     Route: 048
     Dates: start: 20100112, end: 20100116

REACTIONS (2)
  - DIARRHOEA [None]
  - RED BLOOD CELL SEDIMENTATION RATE INCREASED [None]
